FAERS Safety Report 12496635 (Version 3)
Quarter: 2025Q1

REPORT INFORMATION
  Report Type: Report from Study
  Country: CA (occurrence: CA)
  Receive Date: 20160624
  Receipt Date: 20250110
  Transmission Date: 20250409
  Serious: Yes (Other)
  Sender: PFIZER
  Company Number: CA-TAKEDA-2016TUS009271

PATIENT
  Age: 62 Year
  Sex: Female

DRUGS (13)
  1. PANTOPRAZOLE SODIUM [Suspect]
     Active Substance: PANTOPRAZOLE SODIUM
     Dosage: 40 MILLIGRAM, QD
     Route: 065
     Dates: start: 1996
  2. ENTYVIO [Suspect]
     Active Substance: VEDOLIZUMAB
     Indication: Crohn^s disease
     Route: 042
     Dates: start: 20160818
  3. ENTYVIO [Suspect]
     Active Substance: VEDOLIZUMAB
     Route: 042
  4. PROPRANOLOL [Concomitant]
     Active Substance: PROPRANOLOL HYDROCHLORIDE
     Dosage: 10 MILLIGRAM, BID
     Dates: start: 2001
  5. METFORMIN [Concomitant]
     Active Substance: METFORMIN HYDROCHLORIDE
     Dosage: 500 MILLIGRAM, BID
     Dates: start: 201505
  6. LOPERAMIDE HYDROCHLORIDE [Concomitant]
     Active Substance: LOPERAMIDE HYDROCHLORIDE
     Dosage: UNK UNK, QD
  7. QUESTRAN [Concomitant]
     Active Substance: CHOLESTYRAMINE
  8. DOXYCYCLINE [Concomitant]
     Active Substance: DOXYCYCLINE
  9. IRON [Concomitant]
     Active Substance: IRON
     Dates: start: 2006
  10. INNOHEP [Concomitant]
     Active Substance: TINZAPARIN SODIUM
     Dates: start: 2009
  11. TYLENOL WITH CODEINE [Concomitant]
     Active Substance: ACETAMINOPHEN\CODEINE PHOSPHATE
     Dosage: UNK UNK, BID
  12. VITAMIN B12 [Concomitant]
     Active Substance: CYANOCOBALAMIN
     Dates: start: 2006
  13. HULIO [Concomitant]
     Active Substance: ADALIMUMAB-FKJP
     Dates: start: 20230701

REACTIONS (5)
  - Type 2 diabetes mellitus [Unknown]
  - Arrhythmia [Unknown]
  - Trismus [Unknown]
  - Spondylitis [Recovering/Resolving]
  - Osteoarthritis [Unknown]

NARRATIVE: CASE EVENT DATE: 20090101
